FAERS Safety Report 8218542-X (Version None)
Quarter: 2012Q1

REPORT INFORMATION
  Report Type: 
  Country: None (occurrence: None)
  Receive Date: 20120319
  Receipt Date: 20120314
  Transmission Date: 20120608
  Serious: Yes (Life-Threatening, Hospitalization, Other)
  Sender: FDA-Public Use
  Company Number: IL-SANOFI-AVENTIS-2011SA078958

PATIENT
  Age: 62 Year
  Sex: Male

DRUGS (50)
  1. LANTUS [Concomitant]
  2. TRAMADEX [Concomitant]
     Dates: start: 20120207, end: 20120207
  3. ALDOSTERONE [Concomitant]
     Dosage: FIRST REPORTED ON 04 JULY 2011
     Dates: start: 20110327
  4. HMG COA REDUCTASE INHIBITORS [Concomitant]
     Dates: start: 20110704
  5. BISOPROLOL FUMARATE [Concomitant]
  6. SIMVASTATIN [Concomitant]
     Dosage: FIRST REPORTED ON 04 JULY 2011
     Dates: end: 20110925
  7. ANTITHROMBOTIC AGENTS [Concomitant]
     Dosage: FIRST REPORTED ON 04 JULY 2011
     Dates: start: 20110704
  8. PLAVIX [Suspect]
     Route: 065
     Dates: start: 20110327
  9. COUMADIN [Concomitant]
     Dates: end: 20110922
  10. OPTALGIN [Concomitant]
     Dosage: THERPAY END DATE: 10 FEB 2012
     Dates: start: 20120202, end: 20120210
  11. CIPRODEX [Concomitant]
     Dates: start: 20111024, end: 20111102
  12. ANTITHROMBOTIC AGENTS [Concomitant]
     Dosage: FIRST REPORTED ON22 DEC 2010
     Dates: start: 20110327
  13. BETA BLOCKING AGENTS [Concomitant]
     Dosage: FIRST REPORTED ON 27 MARCH 2011
     Dates: start: 20110704
  14. ALL OTHER THERAPEUTIC PRODUCTS [Concomitant]
     Dosage: FIRST REPORTED ON 22 DECEMBER 2010
     Dates: start: 20111222
  15. PLAVIX [Suspect]
     Route: 065
     Dates: end: 20110704
  16. AEROVENT [Concomitant]
     Dates: start: 20110929
  17. ALDOSTERONE [Concomitant]
     Dosage: FIRST REPORTED ON 22 DECEMBER 2010
     Dates: start: 20101222
  18. PLATELET AGGREGATION INHIBITORS [Concomitant]
     Dosage: FIRST REPORTED ON 04 JULY 2011
     Dates: start: 20110327
  19. PLAVIX [Suspect]
     Route: 065
     Dates: start: 20101222
  20. ZINACEF /UNK/ [Concomitant]
     Dates: start: 20110923, end: 20110929
  21. NYSTATIN [Concomitant]
     Dosage: THERAPY END DATE: 16 FEB 2012
     Dates: start: 20120209, end: 20120216
  22. SOLU-MEDROL [Concomitant]
     Dosage: THERAPY END DATE: 10 FEB 2012
     Dates: start: 20120208, end: 20120210
  23. CEFUROXIME [Concomitant]
     Dates: start: 20111007, end: 20111010
  24. FERROCAL [Concomitant]
     Dates: start: 20111021
  25. SIMVASTATIN [Concomitant]
     Dosage: FIRST REPORTED ON 22 DECEMBER 2010
     Dates: end: 20110925
  26. BEZALIP [Concomitant]
     Dates: start: 20110926
  27. DIURETICS [Concomitant]
     Dosage: FIRST REPORTED ON 22 DECEMBER2010
     Dates: start: 20101222
  28. DIURETICS [Concomitant]
     Dosage: FIRST REPORTED ON 04 JULY 2011
     Dates: start: 20110327
  29. DIURETICS [Concomitant]
     Dosage: FIRST REPORTED ON 27 MARCH 2011
     Dates: start: 20110704
  30. ACE INHIBITOR NOS [Concomitant]
     Dosage: FIRST REPORTED ON 04 JULY 2011
     Dates: start: 20110704
  31. HMG COA REDUCTASE INHIBITORS [Concomitant]
     Dosage: FIRST REPORTED ON 22 DECEMBER 2010
     Dates: start: 20101222
  32. OMEPRADEX [Concomitant]
     Dates: start: 20111002
  33. RAMIPRIL [Concomitant]
  34. LIPITOR [Concomitant]
     Dates: start: 20110926
  35. BETA BLOCKING AGENTS [Concomitant]
     Dosage: FIRST REPORTED ON 04 JULY 2011
     Dates: start: 20110327
  36. ASPIRIN [Concomitant]
     Dates: start: 20110924
  37. ROCEPHIN [Concomitant]
     Dates: start: 20110929, end: 20111006
  38. AMIKACIN [Concomitant]
     Dates: start: 20111021, end: 20111023
  39. BETA BLOCKING AGENTS [Concomitant]
     Dosage: FIRST REPORTED ON 22 DECEMBER2010
     Dates: start: 20101222
  40. PLATELET AGGREGATION INHIBITORS [Concomitant]
     Dosage: FIRST REPORTED ON 27 MARCH 2011
     Dates: start: 20110704
  41. ACE INHIBITOR NOS [Concomitant]
     Dosage: FIRST REPORTED ON 22 DECEMBER 2010
     Dates: start: 20111222
  42. PLAVIX [Suspect]
     Route: 065
     Dates: start: 20111128
  43. APIDRA [Concomitant]
  44. RULID [Concomitant]
     Dates: start: 20110922, end: 20111010
  45. SIMVASTATIN [Concomitant]
     Dosage: FIRST REPORTED ON 27 MARCH 2011
     Dates: end: 20110925
  46. ANTITHROMBOTIC AGENTS [Concomitant]
     Dates: start: 20101222
  47. ALDOSTERONE [Concomitant]
     Dosage: FIRST REPORTED ON 27 MARCH 2011
     Dates: start: 20110704
  48. PLATELET AGGREGATION INHIBITORS [Concomitant]
     Dosage: FIRST REPORTED ON 22 DECEMBER2010
     Dates: start: 20101222
  49. ACE INHIBITOR NOS [Concomitant]
     Dates: start: 20110327
  50. HMG COA REDUCTASE INHIBITORS [Concomitant]
     Dates: start: 20110327

REACTIONS (16)
  - WEGENER'S GRANULOMATOSIS [None]
  - MYALGIA [None]
  - DYSPNOEA [None]
  - RENAL FAILURE [None]
  - HAEMOGLOBIN DECREASED [None]
  - CARDIAC FAILURE CONGESTIVE [None]
  - BLOOD UREA INCREASED [None]
  - MELAENA [None]
  - SEPSIS [None]
  - PNEUMONIA [None]
  - ACUTE RESPIRATORY FAILURE [None]
  - COUGH [None]
  - PYREXIA [None]
  - HAEMOPTYSIS [None]
  - GASTROINTESTINAL HAEMORRHAGE [None]
  - ANAEMIA [None]
